FAERS Safety Report 6683957-8 (Version None)
Quarter: 2010Q2

REPORT INFORMATION
  Report Type: 
  Country: None (occurrence: None)
  Receive Date: 20100416
  Receipt Date: 20100406
  Transmission Date: 20101027
  Serious: Yes (Hospitalization, Other)
  Sender: FDA-Public Use
  Company Number: FR-PFIZER INC-2010043312

PATIENT
  Sex: Female

DRUGS (4)
  1. XANAX [Suspect]
     Route: 064
  2. TRANXENE [Suspect]
     Route: 064
  3. DAFALGAN CODEINE [Suspect]
     Route: 064
  4. MEPRONIZINE [Suspect]
     Indication: DEPRESSION
     Route: 064

REACTIONS (2)
  - DRUG EXPOSURE DURING PREGNANCY [None]
  - PREMATURE BABY [None]
